FAERS Safety Report 5445447-X (Version None)
Quarter: 2007Q3

REPORT INFORMATION
  Report Type: 
  Country: None (occurrence: None)
  Receive Date: 20070906
  Receipt Date: 20070827
  Transmission Date: 20080115
  Serious: Yes (Other)
  Sender: FDA-Public Use
  Company Number: US-PFIZER INC-2007071665

PATIENT
  Sex: Female
  Weight: 66.2 kg

DRUGS (4)
  1. HALCION [Suspect]
     Indication: SLEEP DISORDER
  2. ANTIHYPERTENSIVES [Concomitant]
  3. THYROID HORMONES [Concomitant]
  4. HYDROCHLOROTHIAZIDE [Concomitant]

REACTIONS (6)
  - ASTHENIA [None]
  - DRUG INEFFECTIVE [None]
  - FATIGUE [None]
  - INTENTIONAL DRUG MISUSE [None]
  - SPEECH DISORDER [None]
  - URINARY INCONTINENCE [None]
